FAERS Safety Report 5119896-3 (Version None)
Quarter: 2006Q3

REPORT INFORMATION
  Report Type: 
  Country: None (occurrence: None)
  Receive Date: 20060928
  Receipt Date: 20060915
  Transmission Date: 20061208
  Serious: Yes (Death)
  Sender: FDA-Public Use
  Company Number: 2006P1000443

PATIENT
  Age: 77 Year
  Sex: Male

DRUGS (1)
  1. CARDENE [Suspect]
     Indication: HYPERTENSION
     Dosage: SEE IMAGE
     Route: 042

REACTIONS (1)
  - HAEMATOMA [None]
